FAERS Safety Report 23287451 (Version 1)
Quarter: 2023Q4

REPORT INFORMATION
  Report Type: Spontaneous
  Country: NL (occurrence: NL)
  Receive Date: 20231212
  Receipt Date: 20231212
  Transmission Date: 20240110
  Serious: Yes (Disabling)
  Sender: FDA-Public Use
  Company Number: NL-JNJFOC-20231227250

PATIENT
  Sex: Male

DRUGS (4)
  1. HALOPERIDOL [Suspect]
     Active Substance: HALOPERIDOL
     Indication: Delirium
     Dosage: 3 PER DAG
     Route: 065
     Dates: start: 20230821, end: 20231002
  2. ACETAMINOPHEN [Concomitant]
     Active Substance: ACETAMINOPHEN
  3. TAMSULOSIN [Concomitant]
     Active Substance: TAMSULOSIN
     Dosage: TABLET MET GEREGULEERDE AFGIFTE
  4. POLYETHYLENE GLYCOLS [Concomitant]
     Active Substance: POLYETHYLENE GLYCOLS
     Dosage: MOVICOLON POEDER VOOR DRANK IN SACHET(;|POEDER VOOR DRANK)

REACTIONS (2)
  - Dementia [Unknown]
  - Parkinsonism [Unknown]
